FAERS Safety Report 25412675 (Version 1)
Quarter: 2025Q2

REPORT INFORMATION
  Report Type: Spontaneous
  Country: US (occurrence: US)
  Receive Date: 20250609
  Receipt Date: 20250609
  Transmission Date: 20250717
  Serious: Yes (Death)
  Sender: AMGEN
  Company Number: US-AMGEN-USASP2025110384

PATIENT

DRUGS (5)
  1. RITUXIMAB [Suspect]
     Active Substance: RITUXIMAB
     Indication: Transplant rejection
     Route: 065
  2. DARATUMUMAB [Concomitant]
     Active Substance: DARATUMUMAB
     Indication: Transplant rejection
  3. HUMAN IMMUNOGLOBULIN G [Concomitant]
     Active Substance: HUMAN IMMUNOGLOBULIN G
     Route: 040
  4. BORTEZOMIB [Concomitant]
     Active Substance: BORTEZOMIB
  5. TOCILIZUMAB [Concomitant]
     Active Substance: TOCILIZUMAB

REACTIONS (2)
  - Infection [Fatal]
  - Off label use [Unknown]
